FAERS Safety Report 6935163-7 (Version None)
Quarter: 2010Q3

REPORT INFORMATION
  Report Type: 
  Country: None (occurrence: None)
  Receive Date: 20100822
  Receipt Date: 20100816
  Transmission Date: 20110219
  Serious: Yes (Death)
  Sender: FDA-Public Use
  Company Number: PHHY2010ML53662

PATIENT
  Sex: Male
  Weight: 74 kg

DRUGS (1)
  1. GLEEVEC [Suspect]
     Dosage: 400 MG
     Route: 048
     Dates: start: 20100520, end: 20100716

REACTIONS (4)
  - ABDOMINAL PAIN [None]
  - DEATH [None]
  - NAUSEA [None]
  - VOMITING [None]
